FAERS Safety Report 9958834 (Version 4)
Quarter: 2014Q2

REPORT INFORMATION
  Report Type: Spontaneous
  Country: JP (occurrence: JP)
  Receive Date: 20140305
  Receipt Date: 20140407
  Transmission Date: 20141212
  Serious: Yes (Death, Hospitalization, Other)
  Sender: FDA-Public Use
  Company Number: JP-BAYER-2014-030020

PATIENT
  Age: 40 Year
  Sex: Female
  Weight: 85 kg

DRUGS (14)
  1. YAZ [Suspect]
     Indication: ENDOMETRIOSIS
     Dosage: UNK
     Route: 048
     Dates: start: 20130415, end: 2013
  2. YAZ [Suspect]
     Indication: MENORRHAGIA
  3. YAZ [Suspect]
     Indication: DYSMENORRHOEA
  4. YAZ [Suspect]
     Indication: ADENOMYOSIS
  5. YAZ [Suspect]
     Indication: ANAEMIA
  6. ALOSITOL [Concomitant]
     Route: 048
  7. SUPRECUR [Concomitant]
     Indication: HAEMOGLOBIN DECREASED
     Dosage: UNK
     Dates: start: 20121221, end: 20130315
  8. NORVASC [Concomitant]
     Indication: HYPERTENSION
     Route: 048
  9. BLOPRESS [Concomitant]
     Route: 048
  10. BEZATOL [Concomitant]
     Route: 048
  11. FERROMIA [Concomitant]
     Indication: HAEMOGLOBIN DECREASED
     Dosage: UNK
     Route: 048
     Dates: start: 20121221
  12. METHYCOBAL [Concomitant]
     Route: 048
  13. LOXONIN [Concomitant]
     Route: 048
  14. BUFFERIN A [Concomitant]
     Route: 048

REACTIONS (28)
  - Pulmonary embolism [Fatal]
  - Pelvic venous thrombosis [Fatal]
  - Off label use [None]
  - Gait disturbance [Fatal]
  - Decreased appetite [Fatal]
  - Dyspnoea [Fatal]
  - Dizziness [Fatal]
  - Palpitations [Fatal]
  - Chest pain [Fatal]
  - Tachycardia [Fatal]
  - Cold sweat [Fatal]
  - Sense of oppression [Fatal]
  - Nausea [Fatal]
  - Cyanosis [Fatal]
  - Pallor [Fatal]
  - Feeling abnormal [Fatal]
  - Cardio-respiratory arrest [Fatal]
  - Mydriasis [Fatal]
  - Headache [None]
  - Hot flush [None]
  - Genital discharge [None]
  - Anaemia [None]
  - Dizziness [None]
  - Discomfort [None]
  - Vertigo [Fatal]
  - Asthenia [Fatal]
  - Loss of consciousness [Fatal]
  - Muscle fatigue [Fatal]
